FAERS Safety Report 8812318 (Version 1)
Quarter: 2012Q4

REPORT INFORMATION
  Report Type: 
  Country: US (occurrence: US)
  Receive Date: 20120927
  Receipt Date: 20120927
  Transmission Date: 20130627
  Serious: Yes (Hospitalization)
  Sender: FDA-Public Use
  Company Number: US-ELI_LILLY_AND_COMPANY-US201209003081

PATIENT
  Sex: Female
  Weight: 89 kg

DRUGS (11)
  1. EFFIENT [Suspect]
     Indication: STENT PLACEMENT
     Dosage: 10 mg, qd
     Dates: start: 20120904
  2. HUMULIN 30% REGULAR, 70% NPH [Suspect]
     Dosage: UNK
  3. ISOSORB                            /00586302/ [Concomitant]
     Dosage: 30 mg, qd
  4. LISINOPRIL [Concomitant]
     Dosage: 40 mg, bid
  5. NITROGLYCERINE [Concomitant]
     Dosage: 0.4 mg, UNK
  6. PANTOPRAZOLE [Concomitant]
     Dosage: 40 mg, qd
  7. ASPIRIN [Concomitant]
     Dosage: 81 mg, qd
  8. METOPROLOL [Concomitant]
     Dosage: 25 mg, qd
  9. SIMVASTATIN [Concomitant]
     Dosage: 40 mg, qd
  10. TRAMADOL [Concomitant]
     Dosage: 50 mg, prn
  11. TYLENOL /00020001/ [Concomitant]

REACTIONS (7)
  - Coronary artery occlusion [Recovered/Resolved]
  - Blood glucose abnormal [Recovered/Resolved]
  - Contusion [Unknown]
  - Weight increased [Unknown]
  - Surgery [Unknown]
  - Nausea [Unknown]
  - Vomiting [Unknown]
